FAERS Safety Report 9190235 (Version 1)
Quarter: 2013Q1

REPORT INFORMATION
  Report Type: Spontaneous
  Country: US (occurrence: None)
  Receive Date: 20130325
  Receipt Date: 20130325
  Transmission Date: 20140127
  Serious: No
  Sender: FDA-Public Use
  Company Number: None

PATIENT
  Sex: Female
  Weight: 32.21 kg

DRUGS (1)
  1. CLARITIN [Suspect]

REACTIONS (3)
  - Drug ineffective [None]
  - Rhinorrhoea [None]
  - Lacrimation increased [None]
